FAERS Safety Report 8308526-5 (Version None)
Quarter: 2012Q2

REPORT INFORMATION
  Report Type: 
  Country: None (occurrence: None)
  Receive Date: 20120424
  Receipt Date: 20120419
  Transmission Date: 20120825
  Serious: Yes (Death, Other)
  Sender: FDA-Public Use
  Company Number: US-BAYER-201041940NA

PATIENT
  Age: 76 Year
  Sex: Female
  Weight: 89.796 kg

DRUGS (28)
  1. QUINAPRIL [Concomitant]
     Dosage: 20 MG, QD
     Route: 048
  2. FRESH FROZEN PLASMA [Concomitant]
  3. DARVOCET [Concomitant]
     Dosage: 50/325 1 TAB EVERY 4-6 HOURS AS NEEDED
     Route: 048
  4. DOBUTREX [Concomitant]
     Dosage: 2.5MCG, 14
     Route: 042
     Dates: start: 20061010
  5. NOVOLIN [INSULIN] [Concomitant]
     Dosage: UNK
     Route: 042
     Dates: start: 20061010
  6. PHENYLEPHRINE HCL [Concomitant]
     Dosage: UNK
     Dates: start: 20061010
  7. PREDNISONE TAB [Concomitant]
     Dosage: 10 MG, QD
     Route: 048
  8. TRASYLOL [Suspect]
     Dosage: 300 ML APROTININ PRIME
     Route: 042
  9. ZOCOR [Concomitant]
     Dosage: 40 MG, QD
     Route: 048
  10. RED BLOOD CELLS [Concomitant]
     Dosage: UNK
     Dates: start: 20061010
  11. NITROGLYCERIN [Concomitant]
     Dosage: UNK
     Route: 042
     Dates: start: 20061010
  12. LEXAPRO [Concomitant]
     Indication: DEPRESSION
  13. VERSED [Suspect]
  14. ATENOLOL [Concomitant]
     Dosage: 25 MG, QD
     Route: 048
  15. PRILOSEC [Concomitant]
     Dosage: 20 MG, UNK
     Route: 048
  16. FENTANYL [Concomitant]
     Dosage: 20CC
     Route: 042
     Dates: start: 20061010
  17. ANGIOTENSIN II ANTAGONISTS AND DIURETICS [Concomitant]
  18. TRASYLOL [Suspect]
     Indication: CORONARY ARTERY BYPASS
     Dosage: TEST DOSE 1ML
     Route: 042
     Dates: start: 20061010, end: 20061010
  19. PLAQUENIL [Concomitant]
     Dosage: 200 MG, QD
     Route: 048
  20. ASPIRIN [Concomitant]
     Dosage: 81 MG, QD
     Route: 048
  21. FORANE [Concomitant]
     Dosage: UNK
     Dates: start: 20061010
  22. DYAZIDE [Concomitant]
     Dosage: 37.5/25CP DAILY
     Route: 048
  23. HEPARIN [Concomitant]
     Dosage: 37,000 UNITS
     Dates: start: 20061010
  24. LEFLUNOMIDE [Concomitant]
     Dosage: 20MG 1 TABLE DAILY
  25. VANCOMYCIN [Concomitant]
     Dosage: 1 GRAM
     Route: 042
     Dates: start: 20061010
  26. MANNITOL [Concomitant]
     Dosage: 12.5GM
     Route: 042
     Dates: start: 20061010
  27. IOPAMIDOL [Concomitant]
     Dosage: 135 CC
     Dates: start: 20061005
  28. PAVULON [Concomitant]
     Dosage: UNK
     Dates: start: 20061010

REACTIONS (14)
  - DEATH [None]
  - RENAL DISORDER [None]
  - RENAL INJURY [None]
  - ANXIETY [None]
  - PSYCHOLOGICAL TRAUMA [None]
  - UNEVALUABLE EVENT [None]
  - RENAL FAILURE [None]
  - FEAR [None]
  - INJURY [None]
  - MULTI-ORGAN FAILURE [None]
  - EMOTIONAL DISORDER [None]
  - STRESS [None]
  - RENAL IMPAIRMENT [None]
  - PAIN [None]
